FAERS Safety Report 9993230 (Version 1)
Quarter: 2014Q1

REPORT INFORMATION
  Report Type: Report from Study
  Country: US (occurrence: US)
  Receive Date: 20140310
  Receipt Date: 20140310
  Transmission Date: 20141002
  Serious: No
  Sender: FDA-Public Use
  Company Number: US-ABBVIE-14P-163-1195976-00

PATIENT
  Age: 32 Year
  Sex: Female

DRUGS (4)
  1. LUPRON DEPOT [Suspect]
     Indication: ENDOMETRIOSIS
     Dosage: 3 MONTH
     Dates: start: 20131029
  2. NORETHINDRONE ACETATE [Concomitant]
     Indication: PRODUCT USED FOR UNKNOWN INDICATION
     Route: 048
     Dates: start: 20131029
  3. NORETHINDRONE ACETATE [Concomitant]
     Route: 048
  4. NORETHINDRONE ACETATE [Concomitant]
     Route: 048
     Dates: start: 20140123

REACTIONS (1)
  - Vaginal haemorrhage [Recovering/Resolving]
